FAERS Safety Report 5152768-7 (Version None)
Quarter: 2006Q4

REPORT INFORMATION
  Report Type: 
  Country: None (occurrence: None)
  Receive Date: 20060918
  Receipt Date: 20050926
  Transmission Date: 20070319
  Serious: Yes (Other)
  Sender: FDA-Public Use
  Company Number: US-JNJFOC-20050506763

PATIENT
  Age: 38 Year
  Sex: Female

DRUGS (1)
  1. TOPAMAX [Suspect]
     Indication: HEADACHE
     Dosage: 25 MG 1 IN 1 DAY ORAL
     Route: 048
     Dates: start: 20050404, end: 20050412

REACTIONS (1)
  - ANGLE CLOSURE GLAUCOMA [None]
